FAERS Safety Report 16929045 (Version 2)
Quarter: 2020Q1

REPORT INFORMATION
  Report Type: Spontaneous
  Country: US (occurrence: US)
  Receive Date: 20191017
  Receipt Date: 20200115
  Transmission Date: 20200409
  Serious: Yes (Other)
  Sender: FDA-Public Use
  Company Number: US-009507513-1910USA008078

PATIENT
  Age: 54 Year
  Sex: Male

DRUGS (1)
  1. SINEMET [Suspect]
     Active Substance: CARBIDOPA\LEVODOPA
     Indication: PARKINSON^S DISEASE
     Dosage: 25-250 MG, FIVE TIMES DAILY
     Route: 048

REACTIONS (2)
  - Parkinsonism hyperpyrexia syndrome [Unknown]
  - Product dose omission [Unknown]
